FAERS Safety Report 7519822-3 (Version None)
Quarter: 2011Q2

REPORT INFORMATION
  Report Type: 
  Country: None (occurrence: None)
  Receive Date: 20110524
  Receipt Date: 20110509
  Transmission Date: 20111010
  Serious: Yes (Other)
  Sender: FDA-Public Use
  Company Number: AUR-APL-2011-01656

PATIENT
  Age: 50 Year
  Sex: Male

DRUGS (10)
  1. LISINOPRIL [Suspect]
  2. RISPERIDONE [Suspect]
  3. ATENOLOL [Suspect]
  4. SIMVASTATIN [Suspect]
  5. TRICOR [Suspect]
  6. KLONOPIN [Suspect]
  7. FERROUS SULFATE TAB [Suspect]
  8. COGENTIN [Suspect]
  9. JANUMET [Suspect]
  10. ASPIRIN [Suspect]

REACTIONS (9)
  - PALLOR [None]
  - FALL [None]
  - RENAL FAILURE ACUTE [None]
  - LOSS OF CONSCIOUSNESS [None]
  - PAIN [None]
  - BLOOD PRESSURE DECREASED [None]
  - ATRIOVENTRICULAR BLOCK FIRST DEGREE [None]
  - BRADYCARDIA [None]
  - ASTHENIA [None]
